FAERS Safety Report 17998139 (Version 2)
Quarter: 2020Q4

REPORT INFORMATION
  Report Type: Spontaneous
  Country: JP (occurrence: JP)
  Receive Date: 20200708
  Receipt Date: 20201009
  Transmission Date: 20210113
  Serious: Yes (Other)
  Sender: FDA-Public Use
  Company Number: JP-ABBVIE-20P-087-3474072-00

PATIENT
  Age: 46 Year
  Sex: Female

DRUGS (1)
  1. LEUPLIN [Suspect]
     Active Substance: LEUPROLIDE ACETATE
     Indication: PRODUCT USED FOR UNKNOWN INDICATION
     Dosage: 1.88 MILLIGRAM, Q4WEEKS
     Route: 065

REACTIONS (2)
  - Breast pain [Unknown]
  - Arthralgia [Unknown]
